FAERS Safety Report 19498193 (Version 13)
Quarter: 2022Q3

REPORT INFORMATION
  Report Type: Report from Study
  Country: BR (occurrence: BR)
  Receive Date: 20210706
  Receipt Date: 20220905
  Transmission Date: 20221027
  Serious: Yes (Disabling, Other)
  Sender: FDA-Public Use
  Company Number: BR-SA-SAC20210630000068

PATIENT
  Age: 60 Year
  Sex: Female
  Weight: 65 kg

DRUGS (3)
  1. IMIGLUCERASE [Suspect]
     Active Substance: IMIGLUCERASE
     Indication: Gaucher^s disease
     Dosage: 9 DF, QOW
     Route: 041
     Dates: start: 20000101
  2. COVID-19 VACCINE NOS [Concomitant]
     Active Substance: COVID-19 VACCINE NOS
     Indication: Immunisation
     Dosage: 3 DF (3 DOSES OF VACCINE)
  3. ATENOLOL [Concomitant]
     Active Substance: ATENOLOL

REACTIONS (41)
  - Femur fracture [Not Recovered/Not Resolved]
  - Gait disturbance [Unknown]
  - Osteonecrosis [Recovering/Resolving]
  - Immunodeficiency [Recovering/Resolving]
  - Surgery [Unknown]
  - Anxiety [Not Recovered/Not Resolved]
  - Platelet count decreased [Not Recovered/Not Resolved]
  - Insomnia [Not Recovered/Not Resolved]
  - Depression [Not Recovered/Not Resolved]
  - Palpitations [Not Recovered/Not Resolved]
  - Weight increased [Not Recovered/Not Resolved]
  - Bone prosthesis insertion [Not Recovered/Not Resolved]
  - Panic attack [Not Recovered/Not Resolved]
  - Decreased immune responsiveness [Unknown]
  - Fall [Not Recovered/Not Resolved]
  - Tremor [Recovering/Resolving]
  - Condition aggravated [Not Recovered/Not Resolved]
  - Amnesia [Recovering/Resolving]
  - Behaviour disorder [Recovering/Resolving]
  - Osteoarthritis [Recovering/Resolving]
  - Limb injury [Not Recovered/Not Resolved]
  - Head injury [Not Recovered/Not Resolved]
  - Vitamin D decreased [Unknown]
  - Oxygen saturation decreased [Unknown]
  - Overweight [Recovering/Resolving]
  - Oxygen saturation abnormal [Recovering/Resolving]
  - Memory impairment [Unknown]
  - Osteopenia [Unknown]
  - Wrist fracture [Unknown]
  - Obstructive airways disorder [Unknown]
  - Bone disorder [Unknown]
  - Mobility decreased [Unknown]
  - COVID-19 [Unknown]
  - Polymerase chain reaction positive [Unknown]
  - Influenza [Recovering/Resolving]
  - Cough [Recovering/Resolving]
  - Nasopharyngitis [Recovering/Resolving]
  - Hip arthroplasty [Unknown]
  - Pain [Recovering/Resolving]
  - Treatment noncompliance [Unknown]
  - Hypertension [Recovering/Resolving]

NARRATIVE: CASE EVENT DATE: 20000101
